FAERS Safety Report 12597354 (Version 1)
Quarter: 2016Q3

REPORT INFORMATION
  Report Type: Report from Study
  Country: US (occurrence: US)
  Receive Date: 20160726
  Receipt Date: 20160726
  Transmission Date: 20161109
  Serious: Yes (Hospitalization, Other)
  Sender: FDA-Public Use
  Company Number: US-MYLANLABS-2016M1030468

PATIENT

DRUGS (2)
  1. CLOZAPINE. [Suspect]
     Active Substance: CLOZAPINE
     Indication: SCHIZOPHRENIA
     Dosage: 125 MG, QD, HS
     Route: 048
     Dates: end: 201607
  2. CLOZAPINE. [Suspect]
     Active Substance: CLOZAPINE
     Dosage: 150 MG, QD
     Route: 048
     Dates: start: 201607

REACTIONS (3)
  - Schizophrenia [Not Recovered/Not Resolved]
  - Thrombocytopenia [Recovering/Resolving]
  - Gastrooesophageal reflux disease [Not Recovered/Not Resolved]
